FAERS Safety Report 17124991 (Version 1)
Quarter: 2019Q4

REPORT INFORMATION
  Report Type: Spontaneous
  Country: US (occurrence: US)
  Receive Date: 20191206
  Receipt Date: 20191206
  Transmission Date: 20200122
  Serious: Yes (Hospitalization)
  Sender: FDA-Public Use
  Company Number: US-ENDO PHARMACEUTICALS INC-2019-110304

PATIENT
  Age: 23 Year
  Sex: Female

DRUGS (1)
  1. TRAMADOL HYDROCHLORIDE. [Suspect]
     Active Substance: TRAMADOL HYDROCHLORIDE
     Indication: PRODUCT USED FOR UNKNOWN INDICATION
     Dosage: UNK UNKNOWN, UNKNOWN
     Route: 065

REACTIONS (2)
  - Nervous system disorder [Unknown]
  - Cardiovascular symptom [Unknown]

NARRATIVE: CASE EVENT DATE: 2016
